FAERS Safety Report 5333120-8 (Version None)
Quarter: 2007Q2

REPORT INFORMATION
  Report Type: 
  Country: None (occurrence: None)
  Receive Date: 20070524
  Receipt Date: 20070521
  Transmission Date: 20071010
  Serious: Yes (Life-Threatening, Other)
  Sender: FDA-Public Use
  Company Number: CH-ELI_LILLY_AND_COMPANY-CH200705005295

PATIENT
  Age: 51 Year
  Sex: Male

DRUGS (16)
  1. ZYPREXA [Suspect]
     Dosage: 30 MG, DAILY (1/D)
     Route: 048
     Dates: start: 20050101, end: 20061022
  2. CLOZAPINE [Concomitant]
     Dosage: UNK MG, DAILY (1/D)
     Route: 048
  3. CLOZAPINE [Concomitant]
     Dosage: 12.5 MG, UNK
     Route: 048
     Dates: start: 20061004, end: 20061004
  4. CLOZAPINE [Concomitant]
     Dosage: 25 MG, DAILY (1/D)
     Route: 048
     Dates: start: 20061005, end: 20061006
  5. CLOZAPINE [Concomitant]
     Dosage: 50 MG, UNK
     Route: 048
     Dates: start: 20061007, end: 20061007
  6. CLOZAPINE [Concomitant]
     Dosage: 75 MG, DAILY (1/D)
     Route: 048
     Dates: start: 20061008, end: 20061009
  7. CLOZAPINE [Concomitant]
     Dosage: 100 MG, DAILY (1/D)
     Route: 048
     Dates: start: 20061010, end: 20061010
  8. CLOZAPINE [Concomitant]
     Dosage: 150 MG, DAILY (1/D)
     Route: 048
     Dates: start: 20061011, end: 20061012
  9. CLOZAPINE [Concomitant]
     Dosage: 200 MG, DAILY (1/D)
     Route: 048
     Dates: start: 20061013, end: 20061019
  10. CLOZAPINE [Concomitant]
     Dosage: 175 MG, DAILY (1/D)
     Route: 048
     Dates: start: 20061020
  11. LORAZEPAM [Concomitant]
     Dosage: 7.5 MG, DAILY (1/D)
     Route: 048
     Dates: start: 20060728, end: 20060803
  12. LORAZEPAM [Concomitant]
     Dosage: 5 MG, DAILY (1/D)
     Route: 048
     Dates: start: 20060804, end: 20060908
  13. LORAZEPAM [Concomitant]
     Dosage: 2 MG, DAILY (1/D)
     Route: 048
     Dates: start: 20060926, end: 20061022
  14. LORAZEPAM [Concomitant]
     Dosage: 4 MG, DAILY (1/D)
     Route: 048
     Dates: start: 20061023, end: 20061112
  15. ENDOXAN [Concomitant]
     Indication: WALDENSTROM'S MACROGLOBULINAEMIA
     Dosage: 100 MG, DAILY (1/D)
     Route: 048
     Dates: start: 20060805, end: 20061020
  16. PANTOZOL [Concomitant]
     Indication: GASTRIC DISORDER
     Dosage: 40 MG, DAILY (1/D)
     Route: 048
     Dates: start: 20060728, end: 20061122

REACTIONS (3)
  - AGRANULOCYTOSIS [None]
  - LEFT VENTRICULAR HYPERTROPHY [None]
  - OVERDOSE [None]
